FAERS Safety Report 10985060 (Version 1)
Quarter: 2015Q1

REPORT INFORMATION
  Report Type: Spontaneous
  Country: US (occurrence: None)
  Receive Date: 20150313
  Receipt Date: 20150313
  Transmission Date: 20150721
  Serious: Yes (Other)
  Sender: FDA-Public Use
  Company Number: 1415876

PATIENT
  Age: 68 Year
  Sex: Female
  Weight: 22.23 kg

DRUGS (11)
  1. HYOSCYAMINE [Concomitant]
     Active Substance: HYOSCYAMINE
  2. XOLAIR [Suspect]
     Active Substance: OMALIZUMAB
     Indication: ASTHMA
     Dosage: 300 UNIT NOT REPORTED, SUBCUTANEOUS
     Route: 058
     Dates: start: 200806
  3. KLOR-CON [Concomitant]
     Active Substance: POTASSIUM CHLORIDE
  4. ASPIRIN. [Concomitant]
     Active Substance: ASPIRIN
  5. DIOVAN [Concomitant]
     Active Substance: VALSARTAN
  6. NORVASC [Concomitant]
     Active Substance: AMLODIPINE BESYLATE
  7. FISH OIL [Concomitant]
     Active Substance: FISH OIL
  8. PREVACID [Concomitant]
     Active Substance: LANSOPRAZOLE
  9. UBIQUINONE (UBIDECARENONE) [Concomitant]
  10. RED YEAST [Concomitant]
     Active Substance: YEAST
  11. ALBUTEROL (SALBUTAMOL) [Concomitant]
     Active Substance: ALBUTEROL

REACTIONS (4)
  - Unevaluable event [None]
  - Malignant melanoma [None]
  - Non-Hodgkin^s lymphoma [None]
  - Skin mass [None]

NARRATIVE: CASE EVENT DATE: 2011
